FAERS Safety Report 25317671 (Version 1)
Quarter: 2025Q2

REPORT INFORMATION
  Report Type: Spontaneous
  Country: IT (occurrence: IT)
  Receive Date: 20250515
  Receipt Date: 20250515
  Transmission Date: 20250717
  Serious: No
  Sender: ALKEM
  Company Number: IT-ALKEM LABORATORIES LIMITED-IT-ALKEM-2024-16402

PATIENT
  Age: 49 Year
  Sex: Male

DRUGS (9)
  1. AZATHIOPRINE [Suspect]
     Active Substance: AZATHIOPRINE
     Indication: Myasthenia gravis
     Route: 065
  2. AZATHIOPRINE [Suspect]
     Active Substance: AZATHIOPRINE
     Route: 065
  3. AZATHIOPRINE [Suspect]
     Active Substance: AZATHIOPRINE
     Route: 065
  4. AZATHIOPRINE [Suspect]
     Active Substance: AZATHIOPRINE
     Route: 065
  5. PREDNISONE [Suspect]
     Active Substance: PREDNISONE
     Indication: Myasthenia gravis
     Route: 065
  6. PREDNISONE [Suspect]
     Active Substance: PREDNISONE
     Route: 065
  7. PREDNISONE [Suspect]
     Active Substance: PREDNISONE
     Route: 065
  8. PYRIDOSTIGMINE BROMIDE [Suspect]
     Active Substance: PYRIDOSTIGMINE BROMIDE
     Indication: Myasthenia gravis
     Route: 065
  9. PYRIDOSTIGMINE BROMIDE [Suspect]
     Active Substance: PYRIDOSTIGMINE BROMIDE
     Route: 065

REACTIONS (17)
  - Feeling abnormal [Unknown]
  - Discomfort [Unknown]
  - Eye irritation [Unknown]
  - Feeling abnormal [Unknown]
  - Eye pain [Unknown]
  - Hair growth abnormal [Unknown]
  - Irritability [Unknown]
  - Weight increased [Unknown]
  - Weight decreased [Unknown]
  - Abdominal pain upper [Unknown]
  - Arthralgia [Unknown]
  - Abdominal pain [Unknown]
  - Conjunctivitis [Unknown]
  - Fungal infection [Unknown]
  - Malaise [Unknown]
  - Rash [Unknown]
  - Vomiting [Unknown]
